FAERS Safety Report 8155532-X (Version None)
Quarter: 2012Q1

REPORT INFORMATION
  Report Type: 
  Country: None (occurrence: None)
  Receive Date: 20120222
  Receipt Date: 20120210
  Transmission Date: 20120608
  Serious: Yes (Life-Threatening, Other)
  Sender: FDA-Public Use
  Company Number: CA-JNJFOC-20120113003

PATIENT
  Sex: Male
  Weight: 98.4 kg

DRUGS (2)
  1. REMICADE [Suspect]
     Indication: CROHN'S DISEASE
     Route: 042
     Dates: start: 20080101
  2. REMICADE [Suspect]
     Dosage: 10 VIALS
     Route: 042
     Dates: start: 20081216, end: 20120118

REACTIONS (1)
  - ADENOCARCINOMA [None]
